FAERS Safety Report 5340126-1 (Version None)
Quarter: 2007Q2

REPORT INFORMATION
  Report Type: 
  Country: None (occurrence: None)
  Receive Date: 20070525
  Receipt Date: 20070525
  Transmission Date: 20071010
  Serious: Yes (Hospitalization)
  Sender: FDA-Public Use
  Company Number: None

PATIENT
  Age: 25 Year
  Sex: Female
  Weight: 40.8237 kg

DRUGS (5)
  1. TEGRETOL [Suspect]
     Indication: CONVULSION
     Dosage: 200MG BID PO
     Route: 048
     Dates: start: 20060401
  2. RISPERDAL [Concomitant]
  3. COLACE [Concomitant]
  4. ORAL CONTRACEPTION [Concomitant]
  5. AMBIEN [Concomitant]

REACTIONS (4)
  - BLOOD GLUCOSE DECREASED [None]
  - COMA [None]
  - DRUG TOXICITY [None]
  - SOMNOLENCE [None]
